FAERS Safety Report 10535477 (Version 1)
Quarter: 2014Q4

REPORT INFORMATION
  Report Type: Spontaneous
  Country: US (occurrence: US)
  Receive Date: 20141022
  Receipt Date: 20141022
  Transmission Date: 20150529
  Serious: No
  Sender: FDA-Public Use
  Company Number: US-PFIZER INC-2014287598

PATIENT
  Age: 56 Year
  Sex: Male
  Weight: 133.79 kg

DRUGS (1)
  1. AROMASIN [Suspect]
     Active Substance: EXEMESTANE
     Indication: HYPERGONADISM
     Dosage: 12.5 MG (HALF OF PILL), ONCE A DAY ON MONDAY, WEDNESDAY AND FRIDAY

REACTIONS (2)
  - Oestradiol increased [Unknown]
  - Product use issue [Unknown]
